FAERS Safety Report 12398309 (Version 1)
Quarter: 2016Q2

REPORT INFORMATION
  Report Type: Spontaneous
  Country: US (occurrence: US)
  Receive Date: 20160524
  Receipt Date: 20160524
  Transmission Date: 20160815
  Serious: No
  Sender: FDA-Public Use
  Company Number: US-BAYER-2016-099386

PATIENT
  Age: 30 Year
  Sex: Female
  Weight: 80.73 kg

DRUGS (1)
  1. ALEVE [Suspect]
     Active Substance: NAPROXEN SODIUM
     Indication: INFLAMMATION
     Dosage: 1 DF, PRN
     Route: 048
     Dates: start: 2006

REACTIONS (3)
  - Off label use [None]
  - Product use issue [None]
  - Product use issue [None]

NARRATIVE: CASE EVENT DATE: 201601
